FAERS Safety Report 5275265-7 (Version None)
Quarter: 2007Q1

REPORT INFORMATION
  Report Type: 
  Country: None (occurrence: None)
  Receive Date: 20070322
  Receipt Date: 20070322
  Transmission Date: 20070707
  Serious: Yes (Death)
  Sender: FDA-Public Use
  Company Number: None

PATIENT
  Age: 17 Year
  Sex: Male
  Weight: 81 kg

DRUGS (1)
  1. CYMBALTA [Suspect]
     Indication: MAJOR DEPRESSION
     Dosage: 1 CAP (30 MG) QHS PO
     Route: 048
     Dates: start: 20070206, end: 20070209

REACTIONS (2)
  - COMPLETED SUICIDE [None]
  - SEDATION [None]
